FAERS Safety Report 7768511-9 (Version None)
Quarter: 2011Q3

REPORT INFORMATION
  Report Type: 
  Country: None (occurrence: None)
  Receive Date: 20110922
  Receipt Date: 20100910
  Transmission Date: 20111222
  Serious: No
  Sender: FDA-Public Use
  Company Number: US-ASTRAZENECA-2010SE42653

PATIENT
  Sex: Female

DRUGS (1)
  1. SEROQUEL [Suspect]
     Route: 048
     Dates: start: 20080101

REACTIONS (6)
  - NASAL CONGESTION [None]
  - NAUSEA [None]
  - DRUG DOSE OMISSION [None]
  - HEADACHE [None]
  - DYSPNOEA [None]
  - INCORRECT DOSE ADMINISTERED [None]
